FAERS Safety Report 8713950 (Version 6)
Quarter: 2018Q4

REPORT INFORMATION
  Report Type: Spontaneous
  Country: FR (occurrence: FR)
  Receive Date: 20120808
  Receipt Date: 20181204
  Transmission Date: 20190205
  Serious: Yes (Hospitalization, Other)
  Sender: FDA-Public Use
  Company Number: FR-PFIZER INC-2012187589

PATIENT
  Age: 57 Year
  Sex: Female
  Weight: 110 kg

DRUGS (17)
  1. PREVISCAN [Concomitant]
  2. TAHOR [Concomitant]
     Active Substance: ATORVASTATIN CALCIUM
  3. CYMBALTA [Concomitant]
     Active Substance: DULOXETINE HYDROCHLORIDE
  4. OXYCONTIN [Suspect]
     Active Substance: OXYCODONE HYDROCHLORIDE
     Dosage: 20 MG, 2X/DAY
     Route: 048
     Dates: start: 201203, end: 20120621
  5. RIVOTRIL [Suspect]
     Active Substance: CLONAZEPAM
     Dosage: 5 GTT, 1X/DAY
     Route: 048
     Dates: end: 20120621
  6. LANTUS [Concomitant]
     Active Substance: INSULIN GLARGINE
  7. ISOPTIN [Concomitant]
     Active Substance: VERAPAMIL HYDROCHLORIDE
  8. VIRLIX [Suspect]
     Active Substance: CETIRIZINE HYDROCHLORIDE
     Dosage: 10 MG, 1X/DAY
     Route: 048
     Dates: end: 20120621
  9. LOXEN [NICARDIPINE HYDROCHLORIDE] [Concomitant]
     Active Substance: NICARDIPINE HYDROCHLORIDE
  10. OXYNORM [Suspect]
     Active Substance: OXYCODONE HYDROCHLORIDE
     Indication: PAIN
     Dosage: UNK, AS NEEDED
     Route: 048
     Dates: end: 20120621
  11. PARIET [Concomitant]
     Active Substance: RABEPRAZOLE SODIUM
  12. LYRICA [Suspect]
     Active Substance: PREGABALIN
     Dosage: 100 MG, 1X/DAY
     Route: 048
     Dates: end: 20120621
  13. LAROXYL [Suspect]
     Active Substance: AMITRIPTYLINE HYDROCHLORIDE
     Dosage: 50 MG / 2ML, 1X/DAY
     Route: 042
     Dates: end: 20120621
  14. LOSARTAN. [Concomitant]
     Active Substance: LOSARTAN
  15. LEVOTHYROX [Concomitant]
     Active Substance: LEVOTHYROXINE
  16. KARDEGIC [Concomitant]
     Active Substance: ASPIRIN DL-LYSINE
  17. DAFALGAN [Concomitant]
     Active Substance: ACETAMINOPHEN

REACTIONS (5)
  - Arthralgia [Unknown]
  - Urinary tract infection [Unknown]
  - Joint swelling [Unknown]
  - Fall [Unknown]
  - Disturbance in attention [Recovered/Resolved]

NARRATIVE: CASE EVENT DATE: 201206
